FAERS Safety Report 22175637 (Version 1)
Quarter: 2023Q2

REPORT INFORMATION
  Report Type: Spontaneous
  Country: BR (occurrence: BR)
  Receive Date: 20230405
  Receipt Date: 20230405
  Transmission Date: 20230722
  Serious: Yes (Hospitalization, Other)
  Sender: FDA-Public Use
  Company Number: BR-MankindUS-000057

PATIENT
  Age: 20 Year
  Sex: Female

DRUGS (1)
  1. BACLOFEN [Suspect]
     Active Substance: BACLOFEN
     Dosage: CUMULATIVE DOSE-200 MG
     Route: 048

REACTIONS (3)
  - Catatonia [Recovered/Resolved]
  - Overdose [Unknown]
  - Suicide attempt [Unknown]
